FAERS Safety Report 9023768 (Version 1)
Quarter: 2013Q1

REPORT INFORMATION
  Report Type: Spontaneous
  Country: US (occurrence: US)
  Receive Date: 20130121
  Receipt Date: 20130121
  Transmission Date: 20140127
  Serious: Yes (Other)
  Sender: FDA-Public Use
  Company Number: US-MYLANLABS-2013S1000551

PATIENT
  Age: 77 Year
  Sex: Male

DRUGS (2)
  1. ALENDRONATE [Suspect]
     Indication: BONE DENSITY DECREASED
     Route: 048
  2. ASPIRIN [Concomitant]
     Dosage: DISCONTINUED WHEN THE PATIENT WAS ADMITTED FOR OBSERVATION

REACTIONS (6)
  - Accidental overdose [Recovering/Resolving]
  - Laryngeal ulceration [Recovering/Resolving]
  - Haemoptysis [Recovering/Resolving]
  - Aspiration [Recovering/Resolving]
  - Dysphagia [Recovering/Resolving]
  - Cough [Recovering/Resolving]
